FAERS Safety Report 13119338 (Version 2)
Quarter: 2017Q1

REPORT INFORMATION
  Report Type: Spontaneous
  Country: DE (occurrence: DE)
  Receive Date: 20170116
  Receipt Date: 20170118
  Transmission Date: 20170428
  Serious: Yes (Hospitalization, Other)
  Sender: FDA-Public Use
  Company Number: DE-ALLERGAN-1701624US

PATIENT
  Sex: Female
  Weight: 62 kg

DRUGS (9)
  1. SUCRALFATE - BP [Suspect]
     Active Substance: SUCRALFATE
     Indication: PRODUCT USED FOR UNKNOWN INDICATION
     Dosage: UNK, BID
     Dates: end: 20140915
  2. SUCRABEST [Suspect]
     Active Substance: SUCRALFATE
     Indication: PRODUCT USED FOR UNKNOWN INDICATION
     Dosage: UNK
     Dates: end: 20140915
  3. VALORON N [Concomitant]
     Active Substance: NALOXONE HYDROCHLORIDE\TILIDINE HYDROCHLORIDE
     Indication: PRODUCT USED FOR UNKNOWN INDICATION
     Dosage: UNK
     Dates: start: 2001, end: 2014
  4. SORTIS [Concomitant]
     Active Substance: ATORVASTATIN
     Indication: PRODUCT USED FOR UNKNOWN INDICATION
     Dosage: UNK
     Dates: start: 2001, end: 2014
  5. TICLOPIDINE [Concomitant]
     Active Substance: TICLOPIDINE
     Indication: PRODUCT USED FOR UNKNOWN INDICATION
     Dosage: UNK
     Dates: start: 2001, end: 2014
  6. PANTOPRAZOLE [Suspect]
     Active Substance: PANTOPRAZOLE SODIUM
     Indication: PRODUCT USED FOR UNKNOWN INDICATION
     Dosage: 40 UNK, BID (MORNING AND EVENING)
  7. VITAMIN B12 [Concomitant]
     Active Substance: CYANOCOBALAMIN
     Indication: PRODUCT USED FOR UNKNOWN INDICATION
     Dosage: UNK
     Dates: start: 2001, end: 2014
  8. ATACAND [Concomitant]
     Active Substance: CANDESARTAN CILEXETIL
     Indication: PRODUCT USED FOR UNKNOWN INDICATION
     Dosage: UNK
     Dates: start: 2001, end: 2014
  9. STANGYL [Concomitant]
     Active Substance: TRIMIPRAMINE MALEATE
     Indication: PRODUCT USED FOR UNKNOWN INDICATION
     Dosage: UNK
     Dates: start: 2001, end: 2014

REACTIONS (31)
  - Hiatus hernia [Recovering/Resolving]
  - Tricuspid valve incompetence [Unknown]
  - Osteoporosis [Unknown]
  - Proteinuria [Unknown]
  - Hypertension [Unknown]
  - Pruritus generalised [Unknown]
  - Sleep disorder [Unknown]
  - Hand fracture [Unknown]
  - Mitral valve incompetence [Unknown]
  - Spondylitis [Unknown]
  - Arthritis [Unknown]
  - Cachexia [Recovering/Resolving]
  - Diverticulum intestinal [Recovering/Resolving]
  - Cholelithiasis [Unknown]
  - Acidosis [Unknown]
  - Scoliosis [Unknown]
  - Hypertrophy [Unknown]
  - Pain [Unknown]
  - Back pain [Unknown]
  - Reactive gastropathy [Unknown]
  - Weight decreased [Unknown]
  - Oral discomfort [Unknown]
  - Renal disorder [Unknown]
  - Urine aluminium [Unknown]
  - Arthropathy [Unknown]
  - Polyneuropathy [Unknown]
  - Aortic arteriosclerosis [Unknown]
  - Carotid artery stenosis [Recovering/Resolving]
  - Complex regional pain syndrome [Not Recovered/Not Resolved]
  - Blood creatinine increased [Unknown]
  - Vitamin B12 deficiency [Unknown]

NARRATIVE: CASE EVENT DATE: 20140131
